FAERS Safety Report 5947894-6 (Version None)
Quarter: 2008Q4

REPORT INFORMATION
  Report Type: 
  Country: None (occurrence: None)
  Receive Date: 20081111
  Receipt Date: 20080731
  Transmission Date: 20090506
  Serious: No
  Sender: FDA-Public Use
  Company Number: A0740518A

PATIENT
  Sex: Female

DRUGS (2)
  1. TREXIMET [Suspect]
     Indication: HEADACHE
     Route: 048
     Dates: start: 20080701, end: 20080701
  2. IBUPROFEN TABLETS [Concomitant]

REACTIONS (3)
  - HYPERSENSITIVITY [None]
  - LIP DISORDER [None]
  - SWELLING FACE [None]
